FAERS Safety Report 7783415-3 (Version None)
Quarter: 2011Q3

REPORT INFORMATION
  Report Type: 
  Country: None (occurrence: None)
  Receive Date: 20110928
  Receipt Date: 20110919
  Transmission Date: 20111222
  Serious: Yes (Hospitalization, Disabling, Other)
  Sender: FDA-Public Use
  Company Number: US-CELGENEUS-163-21880-11092377

PATIENT
  Sex: Male
  Weight: 72.64 kg

DRUGS (12)
  1. LIPITOR [Concomitant]
     Dosage: 40 MILLIGRAM
     Route: 048
     Dates: start: 20010101
  2. ASPIRIN [Concomitant]
     Dosage: 81 MILLIGRAM
     Route: 048
     Dates: start: 20010101
  3. STEROID [Concomitant]
     Route: 065
     Dates: start: 20110710, end: 20110710
  4. LOTREL [Concomitant]
     Dosage: 10 MILLIGRAM
     Route: 048
     Dates: start: 20010101
  5. OMEPRAZOLE [Concomitant]
     Dosage: 20 MILLIGRAM
     Route: 048
     Dates: start: 20090101
  6. VITAMIN B-12 [Concomitant]
     Route: 065
     Dates: start: 20090101
  7. PREDNISONE [Concomitant]
     Route: 048
     Dates: start: 20110711
  8. REVLIMID [Suspect]
     Indication: MULTIPLE MYELOMA
     Dosage: 15 MILLIGRAM
     Route: 048
     Dates: start: 20110624, end: 20110101
  9. TOPROL-XL [Concomitant]
     Dosage: 50 MILLIGRAM
     Route: 048
     Dates: start: 20010101
  10. CEPHALEXIN [Concomitant]
     Dosage: 500 MILLIGRAM
     Route: 048
     Dates: start: 20090101
  11. VELCADE [Concomitant]
     Route: 065
     Dates: start: 20110624, end: 20110725
  12. DEXAMETHASONE [Concomitant]
     Dosage: 20 MILLIGRAM
     Route: 048
     Dates: start: 20110624

REACTIONS (2)
  - COGNITIVE DISORDER [None]
  - RASH [None]
